FAERS Safety Report 8854955 (Version 3)
Quarter: 2012Q4

REPORT INFORMATION
  Report Type: 
  Country: JP (occurrence: JP)
  Receive Date: 20121023
  Receipt Date: 20121114
  Transmission Date: 20130627
  Serious: Yes (Hospitalization)
  Sender: FDA-Public Use
  Company Number: JP-MERCK-1210JPN009255

PATIENT
  Age: 67 Year
  Sex: Male

DRUGS (4)
  1. GLACTIV [Suspect]
     Indication: TYPE 2 DIABETES MELLITUS
     Route: 048
  2. ROSUVASTATIN CALCIUM [Suspect]
     Route: 048
  3. CLOPIDOGREL [Concomitant]
  4. OLMESARTAN MEDOXOMIL [Concomitant]

REACTIONS (3)
  - Rhabdomyolysis [Recovering/Resolving]
  - Renal failure acute [Recovering/Resolving]
  - Pain [Recovered/Resolved]
